FAERS Safety Report 4462309-5 (Version None)
Quarter: 2004Q3

REPORT INFORMATION
  Report Type: 
  Country: None (occurrence: None)
  Receive Date: 20040924
  Receipt Date: 20040910
  Transmission Date: 20050211
  Serious: Yes (Death)
  Sender: FDA-Public Use
  Company Number: PIR 0409024A

PATIENT

DRUGS (1)
  1. DEXTROSE [Suspect]
     Indication: CARDIAC OPERATION
     Dates: start: 20040823

REACTIONS (1)
  - DEATH [None]
